FAERS Safety Report 12935770 (Version 1)
Quarter: 2016Q4

REPORT INFORMATION
  Report Type: Spontaneous
  Country: GB (occurrence: GB)
  Receive Date: 20161114
  Receipt Date: 20161114
  Transmission Date: 20170207
  Serious: Yes (Hospitalization)
  Sender: FDA-Public Use
  Company Number: GB-ACCORD-045500

PATIENT
  Age: 83 Year
  Sex: Male

DRUGS (11)
  1. CLOPIDOGREL [Concomitant]
     Active Substance: CLOPIDOGREL BISULFATE
  2. SYMBICORT [Concomitant]
     Active Substance: BUDESONIDE\FORMOTEROL FUMARATE DIHYDRATE
  3. ADCAL-D3 [Concomitant]
     Active Substance: CALCIUM CARBONATE\CHOLECALCIFEROL
  4. IVABRADINE/IVABRADINE HYDROCHLORIDE [Concomitant]
  5. TIOTROPIUM/TIOTROPIUM BROMIDE [Concomitant]
  6. SALBUTAMOL [Concomitant]
     Active Substance: ALBUTEROL
  7. SERTRALINE [Suspect]
     Active Substance: SERTRALINE HYDROCHLORIDE
     Indication: DEPRESSION
     Route: 048
     Dates: start: 20161018, end: 20161024
  8. EZETIMIBE. [Concomitant]
     Active Substance: EZETIMIBE
  9. ASPIRIN. [Concomitant]
     Active Substance: ASPIRIN
  10. LACTULOSE. [Concomitant]
     Active Substance: LACTULOSE
  11. LANSOPRAZOLE. [Concomitant]
     Active Substance: LANSOPRAZOLE

REACTIONS (2)
  - Orthostatic hypotension [Recovering/Resolving]
  - Circulatory collapse [Unknown]

NARRATIVE: CASE EVENT DATE: 20161022
